FAERS Safety Report 8515201 (Version 3)
Quarter: 2014Q1

REPORT INFORMATION
  Report Type: Spontaneous
  Country: JP (occurrence: None)
  Receive Date: 20120410
  Receipt Date: 20140210
  Transmission Date: 20141002
  Serious: Yes (Hospitalization, Other)
  Sender: FDA-Public Use
  Company Number: ADR-2010-9578

PATIENT
  Age: 33 Year
  Sex: Female

DRUGS (1)
  1. BACLOFEN [Suspect]
     Indication: MUSCLE SPASTICITY
     Dosage: UNK MCG, DAILY, INTRATHECAL
     Route: 037

REACTIONS (6)
  - Pneumonia [None]
  - Cholecystitis [None]
  - Bedridden [None]
  - Pyrexia [None]
  - Systemic lupus erythematosus [None]
  - Gastritis [None]
